FAERS Safety Report 9021905 (Version 1)
Quarter: 2013Q1

REPORT INFORMATION
  Report Type: Spontaneous
  Country: FR (occurrence: FR)
  Receive Date: 20130118
  Receipt Date: 20130118
  Transmission Date: 20140127
  Serious: Yes (Hospitalization)
  Sender: FDA-Public Use
  Company Number: FR-JNJFOC-20130105871

PATIENT
  Age: 41 Year
  Sex: Female

DRUGS (4)
  1. REMICADE [Suspect]
     Indication: CROHN^S DISEASE
     Route: 042
     Dates: start: 201011, end: 201101
  2. HUMIRA [Suspect]
     Indication: CROHN^S DISEASE
     Route: 042
     Dates: start: 2009, end: 2009
  3. HUMIRA [Suspect]
     Indication: CROHN^S DISEASE
     Route: 042
     Dates: start: 201111, end: 201203
  4. HUMIRA [Suspect]
     Indication: CROHN^S DISEASE
     Route: 042
     Dates: start: 201109, end: 20111010

REACTIONS (1)
  - Major depression [Recovering/Resolving]
